FAERS Safety Report 10645817 (Version 1)
Quarter: 2014Q4

REPORT INFORMATION
  Report Type: Spontaneous
  Country: IT (occurrence: IT)
  Receive Date: 20141211
  Receipt Date: 20141211
  Transmission Date: 20150529
  Serious: Yes (Hospitalization)
  Sender: FDA-Public Use
  Company Number: IT-NOVOPROD-431551

PATIENT
  Age: 60 Year
  Sex: Male

DRUGS (10)
  1. PIOGLITAZONE [Suspect]
     Active Substance: PIOGLITAZONE
     Indication: DIABETES MELLITUS
     Dosage: 30 MG
     Route: 030
     Dates: start: 20140729, end: 20140811
  2. PLETAL [Concomitant]
     Active Substance: CILOSTAZOL
     Dosage: 50 MG
     Route: 065
  3. SIMVASTATINA [Concomitant]
     Active Substance: SIMVASTATIN
     Dosage: 40 MG
     Route: 065
  4. NORVASC [Concomitant]
     Active Substance: AMLODIPINE BESYLATE
     Dosage: 5 MG
     Route: 065
  5. CARDIOASPIRIN [Concomitant]
     Active Substance: ASPIRIN
     Dosage: 100 MG
     Route: 065
  6. LASIX [Concomitant]
     Active Substance: FUROSEMIDE
     Dosage: 50 MG
     Route: 065
  7. NOVORAPID [Suspect]
     Active Substance: INSULIN ASPART
     Indication: DIABETES MELLITUS
     Dosage: 86 U, QD
     Route: 065
     Dates: start: 20100101
  8. LEVEMIR [Suspect]
     Active Substance: INSULIN DETEMIR
     Indication: DIABETES MELLITUS
     Dosage: 60 U, QD
     Route: 065
     Dates: start: 20100101
  9. LANSOPRAZOLO [Concomitant]
     Active Substance: LANSOPRAZOLE
     Dosage: 30 MG
     Route: 065
  10. ENAPREN [Concomitant]
     Active Substance: ENALAPRIL MALEATE
     Dosage: 20 MG
     Route: 065

REACTIONS (2)
  - Oedema peripheral [Not Recovered/Not Resolved]
  - Pleural effusion [Not Recovered/Not Resolved]

NARRATIVE: CASE EVENT DATE: 20140811
